FAERS Safety Report 23864969 (Version 2)
Quarter: 2024Q4

REPORT INFORMATION
  Report Type: Report from Study
  Country: GB (occurrence: GB)
  Receive Date: 20240516
  Receipt Date: 20241108
  Transmission Date: 20250114
  Serious: Yes (Hospitalization, Other)
  Sender: ABBVIE
  Company Number: GB-JNJFOC-20240530122

PATIENT
  Age: 84 Year
  Sex: Male

DRUGS (9)
  1. IMBRUVICA [Suspect]
     Active Substance: IBRUTINIB
     Indication: Chronic lymphocytic leukaemia
     Route: 048
     Dates: start: 20180827
  2. IMBRUVICA [Suspect]
     Active Substance: IBRUTINIB
     Indication: Chronic lymphocytic leukaemia
     Route: 048
  3. IMBRUVICA [Suspect]
     Active Substance: IBRUTINIB
     Indication: Chronic lymphocytic leukaemia
     Route: 048
     Dates: start: 20180918
  4. SULFAMETHOXAZOLE\TRIMETHOPRIM [Concomitant]
     Active Substance: SULFAMETHOXAZOLE\TRIMETHOPRIM
     Indication: Product used for unknown indication
     Dosage: 160/800
  5. VALACYCLOVIR HYDROCHLORIDE [Concomitant]
     Active Substance: VALACYCLOVIR HYDROCHLORIDE
     Indication: Product used for unknown indication
  6. RAMIPRIL [Concomitant]
     Active Substance: RAMIPRIL
     Indication: Product used for unknown indication
  7. TAMSULOSIN [Concomitant]
     Active Substance: TAMSULOSIN
     Indication: Product used for unknown indication
     Dosage: 400 MICROGRAM
  8. ALLOPURINOL [Concomitant]
     Active Substance: ALLOPURINOL
     Indication: Product used for unknown indication
  9. KEPPRA [Concomitant]
     Active Substance: LEVETIRACETAM
     Indication: Product used for unknown indication

REACTIONS (5)
  - Seizure [Recovering/Resolving]
  - Pain [Unknown]
  - Chronic lymphocytic leukaemia [Not Recovered/Not Resolved]
  - Swelling [Unknown]
  - Taste disorder [Unknown]

NARRATIVE: CASE EVENT DATE: 20240425
